FAERS Safety Report 5344267-4 (Version None)
Quarter: 2007Q2

REPORT INFORMATION
  Report Type: 
  Country: None (occurrence: None)
  Receive Date: 20070604
  Receipt Date: 20070525
  Transmission Date: 20071010
  Serious: Yes (Hospitalization)
  Sender: FDA-Public Use
  Company Number: US-JNJFOC-20070506484

PATIENT
  Sex: Female
  Weight: 47.63 kg

DRUGS (11)
  1. DURAGESIC-100 [Suspect]
     Dosage: 25 UG/HR AND 100 UG/HR
     Route: 062
  2. DURAGESIC-100 [Suspect]
     Indication: PAIN
     Route: 062
  3. EFFEXOR XR [Concomitant]
     Indication: DEPRESSION
     Route: 048
  4. PROTONIX [Concomitant]
     Indication: GASTROOESOPHAGEAL REFLUX DISEASE
     Route: 048
  5. SOMA [Concomitant]
     Indication: MUSCLE SPASMS
     Route: 048
  6. BACLOFEN [Concomitant]
     Indication: MUSCLE SPASMS
     Route: 048
  7. DIAZEPAM [Concomitant]
     Indication: MUSCLE SPASMS
     Route: 048
  8. IMITREX [Concomitant]
     Indication: MIGRAINE
     Dosage: ONE AS NEEDED
     Route: 048
  9. FOSAMAX [Concomitant]
     Indication: OSTEOPENIA
     Route: 048
  10. XANAX [Concomitant]
     Indication: ANXIETY
     Route: 048
  11. TEMAZEPAM [Concomitant]
     Indication: INSOMNIA
     Route: 048

REACTIONS (6)
  - APPLICATION SITE PRURITUS [None]
  - APPLICATION SITE RASH [None]
  - BACK DISORDER [None]
  - PAIN [None]
  - SPINAL FUSION SURGERY [None]
  - WRONG TECHNIQUE IN DRUG USAGE PROCESS [None]
